FAERS Safety Report 4840090-5 (Version None)
Quarter: 2005Q4

REPORT INFORMATION
  Report Type: 
  Country: None (occurrence: None)
  Receive Date: 20051125
  Receipt Date: 20051114
  Transmission Date: 20060501
  Serious: Yes (Other)
  Sender: FDA-Public Use
  Company Number: 2005155688

PATIENT
  Age: 60 Year
  Sex: Female
  Weight: 65.318 kg

DRUGS (4)
  1. BENADRYL [Suspect]
     Indication: HYPERSENSITIVITY
     Dosage: 2 ULTRATABS EVERY 4 HOURS, DAILY, ORAL
     Route: 048
  2. BENADRYL [Suspect]
     Indication: SLEEP DISORDER
     Dosage: 4 FASTMELTS NIGHTLY, ORAL
     Route: 048
  3. ALLERGY MEDICATION (ALLERGY MEDICATION) [Suspect]
     Indication: MYCOTIC ALLERGY
     Dosage: 2 SHOTS WEEKLY
  4. LEVOSALBUTAMOL (LEVOSALBUTAMOL) [Concomitant]

REACTIONS (4)
  - BLOOD DISORDER [None]
  - BREAST CANCER [None]
  - DRUG EFFECT DECREASED [None]
  - MEDICAL DEVICE COMPLICATION [None]
